FAERS Safety Report 21874241 (Version 2)
Quarter: 2023Q1

REPORT INFORMATION
  Report Type: Report from Study
  Country: TR (occurrence: TR)
  Receive Date: 20230117
  Receipt Date: 20230123
  Transmission Date: 20230418
  Serious: Yes (Death, Hospitalization)
  Sender: FDA-Public Use
  Company Number: TR-KARYOPHARM THERAPEUTICS, INC.-2023KPT000301

PATIENT
  Age: 72 Year
  Sex: Female

DRUGS (5)
  1. SELINEXOR [Suspect]
     Active Substance: SELINEXOR
     Indication: Plasma cell myeloma
     Dosage: UNK
     Dates: start: 20221018, end: 202212
  2. DEXAMETHASONE [Concomitant]
     Active Substance: DEXAMETHASONE
     Indication: Plasma cell myeloma
  3. ELIQUIS [Concomitant]
     Active Substance: APIXABAN
     Dosage: UNK
  4. EUTHYROX [Concomitant]
     Active Substance: LEVOTHYROXINE SODIUM
     Dosage: UNK
  5. INDAPAMIDE [Concomitant]
     Active Substance: INDAPAMIDE

REACTIONS (2)
  - Septic shock [Fatal]
  - Tooth infection [Unknown]

NARRATIVE: CASE EVENT DATE: 20221224
